FAERS Safety Report 25173520 (Version 10)
Quarter: 2025Q3

REPORT INFORMATION
  Report Type: Spontaneous
  Country: US (occurrence: US)
  Receive Date: 20250408
  Receipt Date: 20250731
  Transmission Date: 20251021
  Serious: No
  Sender: PFIZER
  Company Number: US-PFIZER INC-202500070388

PATIENT
  Age: 12 Year
  Sex: Male

DRUGS (3)
  1. GENOTROPIN [Suspect]
     Active Substance: SOMATROPIN
     Dates: start: 202212
  2. GENOTROPIN [Suspect]
     Active Substance: SOMATROPIN
     Dosage: 1 MG, DAILY
  3. GENOTROPIN [Suspect]
     Active Substance: SOMATROPIN

REACTIONS (7)
  - Injection site mass [Unknown]
  - Injection site pain [Unknown]
  - Drug dose omission by device [Unknown]
  - Device defective [Unknown]
  - Needle issue [Unknown]
  - Patient-device incompatibility [Unknown]
  - Injection site mass [Unknown]

NARRATIVE: CASE EVENT DATE: 20250101
